FAERS Safety Report 9767487 (Version 1)
Quarter: 2013Q4

REPORT INFORMATION
  Report Type: Spontaneous
  Country: US (occurrence: None)
  Receive Date: 20131213
  Receipt Date: 20131213
  Transmission Date: 20140711
  Serious: Yes (Other)
  Sender: FDA-Public Use
  Company Number: 2013SA025977

PATIENT
  Age: 75 Year
  Sex: Female

DRUGS (1)
  1. CAPZASIN HP CREME [Suspect]
     Indication: RASH
     Dosage: 0.5 TEASPOON(S); ONCE; TOPICAL
     Route: 061
     Dates: start: 20100622

REACTIONS (4)
  - Burns second degree [None]
  - Blister [None]
  - Application site burn [None]
  - Chemical injury [None]
